FAERS Safety Report 19953810 (Version 2)
Quarter: 2021Q4

REPORT INFORMATION
  Report Type: Spontaneous
  Country: None (occurrence: US)
  Receive Date: 20211014
  Receipt Date: 20211115
  Transmission Date: 20220303
  Serious: Yes (Hospitalization)
  Sender: FDA-Public Use
  Company Number: US-Y-MABS THERAPEUTICS-2120537

PATIENT
  Age: 9 Year
  Sex: Female
  Weight: 27.4 kg

DRUGS (15)
  1. DANYELZA [Suspect]
     Active Substance: NAXITAMAB-GQGK
     Indication: Neuroblastoma
     Route: 042
     Dates: start: 20210823, end: 20210827
  2. MORPHINE SULFATE [Concomitant]
     Active Substance: MORPHINE SULFATE
     Route: 042
     Dates: start: 20210823
  3. BENADRYL [Concomitant]
     Active Substance: DIPHENHYDRAMINE HYDROCHLORIDE
     Route: 042
     Dates: start: 20210823
  4. NS SORBET APF [Concomitant]
     Active Substance: SODIUM FLUORIDE
     Route: 042
     Dates: start: 20210823
  5. EPINEPHRINE [Concomitant]
     Active Substance: EPINEPHRINE
     Route: 042
  6. OXYGEN [Concomitant]
     Active Substance: OXYGEN
     Route: 045
  7. LEUKINE [Concomitant]
     Active Substance: SARGRAMOSTIM
  8. METHYLPRED DP [Concomitant]
     Active Substance: METHYLPREDNISOLONE
  9. PEPCID AC [Concomitant]
     Active Substance: FAMOTIDINE
  10. ZOFRAN [Concomitant]
     Active Substance: ONDANSETRON HYDROCHLORIDE
  11. APAP [Concomitant]
     Active Substance: ACETAMINOPHEN
  12. GABAPENTIN [Concomitant]
     Active Substance: GABAPENTIN
  13. SEPTRA [Concomitant]
     Active Substance: SULFAMETHOXAZOLE\TRIMETHOPRIM
  14. OXYCODONE. [Concomitant]
     Active Substance: OXYCODONE HYDROCHLORIDE
  15. SODIUM CHLORIDE [Concomitant]
     Active Substance: SODIUM CHLORIDE

REACTIONS (12)
  - Abdominal pain [Unknown]
  - Pruritus [Unknown]
  - Urticaria [Unknown]
  - Vomiting [Unknown]
  - Hypotension [Unknown]
  - Oxygen saturation decreased [Unknown]
  - Pruritus [Unknown]
  - Urticaria [Unknown]
  - Abdominal pain [Unknown]
  - Pruritus [Unknown]
  - Urticaria [Unknown]
  - Abdominal pain [Unknown]

NARRATIVE: CASE EVENT DATE: 20210823
